FAERS Safety Report 8437783-X (Version None)
Quarter: 2012Q2

REPORT INFORMATION
  Report Type: 
  Country: None (occurrence: None)
  Receive Date: 20120614
  Receipt Date: 20120509
  Transmission Date: 20120825
  Serious: No
  Sender: FDA-Public Use
  Company Number: US-AMGEN-USASP2012023562

PATIENT
  Age: 67 Year
  Sex: Female
  Weight: 82.993 kg

DRUGS (6)
  1. SYNTHROID [Concomitant]
  2. AMITRIPTYLINE HCL [Concomitant]
  3. PROLIA [Suspect]
     Indication: OSTEOPOROSIS POSTMENOPAUSAL
     Dosage: 60 MG, Q6MO
     Route: 058
     Dates: start: 20120222
  4. PLAQUENIL [Concomitant]
  5. PREMPRO [Concomitant]
  6. PLAVIX [Concomitant]

REACTIONS (6)
  - GRANULOMA ANNULARE [None]
  - EAR PRURITUS [None]
  - EYE INFECTION [None]
  - SKIN INFECTION [None]
  - EAR INFECTION [None]
  - FUNGAL INFECTION [None]
